FAERS Safety Report 10221872 (Version 2)
Quarter: 2014Q2

REPORT INFORMATION
  Report Type: Spontaneous
  Country: BR (occurrence: BR)
  Receive Date: 20140606
  Receipt Date: 20140606
  Transmission Date: 20141212
  Serious: No
  Sender: FDA-Public Use
  Company Number: BR-BIOMARINAP-BR-2013-101486

PATIENT
  Age: 8 Year
  Sex: Female
  Weight: 15 kg

DRUGS (1)
  1. NAGLAZYME [Suspect]
     Indication: MUCOPOLYSACCHARIDOSIS VI
     Dosage: 15 MG, QW
     Route: 041
     Dates: start: 20101108

REACTIONS (5)
  - Upper respiratory tract infection [Recovered/Resolved]
  - Cough [Recovered/Resolved]
  - Rhinitis [Recovered/Resolved]
  - Pyrexia [Recovered/Resolved]
  - Abdominal pain [Recovered/Resolved]
